FAERS Safety Report 16817779 (Version 2)
Quarter: 2020Q1

REPORT INFORMATION
  Report Type: Spontaneous
  Country: AT (occurrence: AT)
  Receive Date: 20190917
  Receipt Date: 20200213
  Transmission Date: 20200409
  Serious: Yes (Death, Hospitalization, Other)
  Sender: FDA-Public Use
  Company Number: AT-VALIDUS PHARMACEUTICALS LLC-AT-2019VAL000502

PATIENT

DRUGS (1)
  1. LASIX [Suspect]
     Active Substance: FUROSEMIDE
     Indication: PRODUCT USED FOR UNKNOWN INDICATION
     Dosage: 250 ML, ADMINISTERED OCCASIONALLY
     Route: 065

REACTIONS (14)
  - Death [Fatal]
  - Chronic obstructive pulmonary disease [Unknown]
  - Dementia Alzheimer^s type [Unknown]
  - Pyrexia [Unknown]
  - Gait disturbance [Unknown]
  - Cardiac disorder [Unknown]
  - Lung neoplasm malignant [Unknown]
  - Hallucination [Unknown]
  - Critical illness [Unknown]
  - Cardiovascular disorder [Unknown]
  - Metastasis [Unknown]
  - Dysphagia [Unknown]
  - Diarrhoea [Unknown]
  - Asthenia [Unknown]
